FAERS Safety Report 4526728-0 (Version None)
Quarter: 2004Q4

REPORT INFORMATION
  Report Type: 
  Country: None (occurrence: None)
  Receive Date: 20041213
  Receipt Date: 20041129
  Transmission Date: 20050328
  Serious: Yes (Death)
  Sender: FDA-Public Use
  Company Number: 205869

PATIENT
  Age: 53 Year
  Sex: Male

DRUGS (23)
  1. AVONEX [Suspect]
     Indication: MULTIPLE SCLEROSIS
     Dosage: 30 UG; QW; IM
     Route: 030
     Dates: start: 20030403, end: 20030801
  2. AVONEX [Suspect]
     Indication: MULTIPLE SCLEROSIS
     Dosage: 30 UG; QW; IM
     Route: 030
     Dates: start: 20030801, end: 20040920
  3. AGRYLIN [Concomitant]
  4. ALPRAZOLAM [Concomitant]
  5. ASPIRIN [Concomitant]
  6. B-12 [Concomitant]
  7. FOLIC ACID [Concomitant]
  8. ISOSORBIDE MONONITRATE [Concomitant]
  9. METOPROLOL TARTRATE [Concomitant]
  10. MIRALAX [Concomitant]
  11. COLACE [Concomitant]
  12. FISH OIL [Concomitant]
  13. NIFEDIPINE [Concomitant]
  14. NORTRIPTYLINE HCL [Concomitant]
  15. ONE A DAY VITAMIN [Concomitant]
  16. NITRO-DUR [Concomitant]
  17. PAXIL CR [Concomitant]
  18. PLAVIX [Concomitant]
  19. PLETAL [Concomitant]
  20. RAMIPRIL [Concomitant]
  21. RANITIDINE [Concomitant]
  22. ZOCOR [Concomitant]
  23. NITROGLYCERIN [Concomitant]

REACTIONS (3)
  - CEREBROVASCULAR ACCIDENT [None]
  - MYOCARDIAL INFARCTION [None]
  - SUDDEN CARDIAC DEATH [None]
